FAERS Safety Report 12763153 (Version 5)
Quarter: 2016Q4

REPORT INFORMATION
  Report Type: Report from Study
  Country: US (occurrence: US)
  Receive Date: 20160920
  Receipt Date: 20161104
  Transmission Date: 20170207
  Serious: Yes (Hospitalization)
  Sender: FDA-Public Use
  Company Number: US-JNJFOC-20160903260

PATIENT
  Age: 67 Year
  Sex: Female
  Weight: 63 kg

DRUGS (1)
  1. IMBRUVICA [Suspect]
     Active Substance: IBRUTINIB
     Indication: CHRONIC LYMPHOCYTIC LEUKAEMIA
     Route: 048
     Dates: start: 20160805, end: 20161003

REACTIONS (9)
  - Cough [Not Recovered/Not Resolved]
  - Haemothorax [Recovering/Resolving]
  - White blood cell count increased [Recovering/Resolving]
  - Oral mucosal blistering [Unknown]
  - Vomiting [Unknown]
  - Respiratory distress [Recovering/Resolving]
  - Chest pain [Recovered/Resolved]
  - Insomnia [Not Recovered/Not Resolved]
  - Arthralgia [Unknown]

NARRATIVE: CASE EVENT DATE: 20160830
